FAERS Safety Report 19879581 (Version 1)
Quarter: 2021Q3

REPORT INFORMATION
  Report Type: Spontaneous
  Country: PT (occurrence: PT)
  Receive Date: 20210924
  Receipt Date: 20210924
  Transmission Date: 20211014
  Serious: Yes (Disabling, Other)
  Sender: FDA-Public Use
  Company Number: PT-MYLANLABS-2021M1065142

PATIENT
  Age: 26 Year
  Sex: Female
  Weight: 52.5 kg

DRUGS (12)
  1. PAROXETINA                         /00830801/ [Concomitant]
     Active Substance: PAROXETINE
     Indication: ANXIETY
     Dosage: 0.5 MILLIGRAM, QD (HALF TABLET)
     Route: 048
     Dates: start: 202107
  2. ZOLPIDEM [Concomitant]
     Active Substance: ZOLPIDEM TARTRATE
     Indication: ANXIETY
     Dosage: 0.5 MILLIGRAM, QD (HALF OF TABLET)
     Route: 048
     Dates: start: 202107
  3. DYMISTA [Suspect]
     Active Substance: AZELASTINE HYDROCHLORIDE\FLUTICASONE PROPIONATE
     Indication: RHINITIS ALLERGIC
     Dosage: UNK UNK, BID (DAY, IN THE MORNING AND AT NIGHT)
     Route: 045
     Dates: start: 202009, end: 202101
  4. BUPROPION. [Concomitant]
     Active Substance: BUPROPION
     Indication: ANXIETY
     Dosage: 1 DOSAGE FORM, QD (LAST WEEK)
     Route: 048
  5. MIRANOVA [Concomitant]
     Active Substance: ETHINYL ESTRADIOL\LEVONORGESTREL
     Indication: CONTRACEPTION
     Dosage: 1 DOSAGE FORM, QD
     Route: 048
  6. PAROXETINA                         /00830801/ [Concomitant]
     Active Substance: PAROXETINE
     Indication: INSOMNIA
  7. DYMISTA [Suspect]
     Active Substance: AZELASTINE HYDROCHLORIDE\FLUTICASONE PROPIONATE
     Dosage: UNK UNK, BID (DAY, AT NIGHT (INTERMITTENTLY)
     Route: 045
     Dates: start: 202101, end: 20210916
  8. PANTOPRAZOLE [Concomitant]
     Active Substance: PANTOPRAZOLE
     Indication: GASTRIC DISORDER
     Dosage: 1 DOSAGE FORM, QD (LONG TIME AGO)
     Route: 048
  9. NUROFEN                            /00109201/ [Concomitant]
     Active Substance: IBUPROFEN
     Indication: MIGRAINE
     Dosage: UNK (IN SOS)
     Route: 048
  10. PANTOPRAZOLE [Concomitant]
     Active Substance: PANTOPRAZOLE
     Indication: GASTRITIS
  11. ZOLPIDEM [Concomitant]
     Active Substance: ZOLPIDEM TARTRATE
     Indication: INSOMNIA
  12. BUPROPION. [Concomitant]
     Active Substance: BUPROPION
     Indication: INSOMNIA

REACTIONS (5)
  - Myopia [Not Recovered/Not Resolved]
  - Cataract [Not Recovered/Not Resolved]
  - Migraine [Not Recovered/Not Resolved]
  - Visual impairment [Not Recovered/Not Resolved]
  - Photosensitivity reaction [Not Recovered/Not Resolved]

NARRATIVE: CASE EVENT DATE: 202106
